FAERS Safety Report 6489695-9 (Version None)
Quarter: 2009Q4

REPORT INFORMATION
  Report Type: 
  Country: None (occurrence: None)
  Receive Date: 20091207
  Receipt Date: 20091124
  Transmission Date: 20100525
  Serious: Yes (Disabling)
  Sender: FDA-Public Use
  Company Number: 2009AL007473

PATIENT
  Age: 45 Year
  Sex: Female
  Weight: 77.1115 kg

DRUGS (4)
  1. CLONAZEPAM [Suspect]
     Indication: ANXIETY
     Dosage: 2 MG; QID; PO
     Route: 048
     Dates: start: 20090101
  2. SYNTHROID [Concomitant]
  3. LEVOTHYROXINE SODIUM [Concomitant]
  4. XANAX [Concomitant]

REACTIONS (9)
  - APPARENT DEATH [None]
  - DISSOCIATION [None]
  - DRUG SCREEN NEGATIVE [None]
  - DRUG TOXICITY [None]
  - IMPAIRED DRIVING ABILITY [None]
  - MALAISE [None]
  - OVERDOSE [None]
  - SKIN BURNING SENSATION [None]
  - TREMOR [None]
